FAERS Safety Report 6275699-8 (Version None)
Quarter: 2009Q3

REPORT INFORMATION
  Report Type: 
  Country: None (occurrence: None)
  Receive Date: 20090721
  Receipt Date: 20090707
  Transmission Date: 20100115
  Serious: Yes (Other)
  Sender: FDA-Public Use
  Company Number: PHHY2009CN27710

PATIENT

DRUGS (1)
  1. REGITINE [Suspect]
     Indication: PNEUMONIA ASPIRATION
     Dosage: 0.3 - 0.5 MG/KG FOR MORE THAN 20 HOURS
     Route: 042

REACTIONS (3)
  - CYANOSIS [None]
  - DYSPNOEA [None]
  - NASAL CONGESTION [None]
